FAERS Safety Report 9887518 (Version 1)
Quarter: 2013Q4

REPORT INFORMATION
  Report Type: Spontaneous
  Country: US (occurrence: None)
  Receive Date: 20131223
  Receipt Date: 20131223
  Transmission Date: 20140711
  Serious: Yes (Other)
  Sender: FDA-Public Use
  Company Number: 217836LEO

PATIENT
  Age: 49 Year
  Sex: 0

DRUGS (1)
  1. PICATO (0.015 %, GEL) [Suspect]
     Indication: DERMATITIS PAPILLARIS CAPILLITII
     Route: 061
     Dates: start: 20120525, end: 20120527

REACTIONS (4)
  - Erythema [None]
  - Blister [None]
  - Skin fissures [None]
  - Drug administered at inappropriate site [None]
